FAERS Safety Report 9923852 (Version 1)
Quarter: 2014Q1

REPORT INFORMATION
  Report Type: Spontaneous
  Country: US (occurrence: US)
  Receive Date: 20140225
  Receipt Date: 20140225
  Transmission Date: 20141002
  Serious: No
  Sender: FDA-Public Use
  Company Number: US-AMGEN-USASP2014006022

PATIENT
  Age: 59 Year
  Sex: Female
  Weight: 77.1 kg

DRUGS (1)
  1. ENBREL [Suspect]
     Indication: RHEUMATOID ARTHRITIS
     Dosage: 50 MG, 2 TIMES/WK
     Route: 058

REACTIONS (3)
  - Drug effect incomplete [Unknown]
  - Pain [Unknown]
  - Injection site pain [Unknown]
